FAERS Safety Report 6240949-0 (Version None)
Quarter: 2009Q2

REPORT INFORMATION
  Report Type: 
  Country: None (occurrence: None)
  Receive Date: 20090623
  Receipt Date: 20090615
  Transmission Date: 20091009
  Serious: Yes (Hospitalization, Other)
  Sender: FDA-Public Use
  Company Number: DE-ABBOTT-08P-062-0455171-00

PATIENT
  Sex: Male
  Weight: 78 kg

DRUGS (5)
  1. HUMIRA [Suspect]
     Indication: ANKYLOSING SPONDYLITIS
     Route: 058
     Dates: start: 20060701, end: 20090201
  2. HUMIRA [Suspect]
     Dates: start: 20090201
  3. TRAMADOL HCL [Concomitant]
     Indication: PAIN
     Dates: start: 20050101
  4. TRAMADOL HCL [Concomitant]
     Indication: ANKYLOSING SPONDYLITIS
  5. ESOMEPRAZOLE MAGNESIUM [Concomitant]
     Indication: GASTROOESOPHAGEAL REFLUX DISEASE
     Route: 048
     Dates: start: 20070101

REACTIONS (1)
  - VOCAL CORD POLYP [None]
